FAERS Safety Report 10257384 (Version 1)
Quarter: 2014Q2

REPORT INFORMATION
  Report Type: Spontaneous
  Country: BR (occurrence: None)
  Receive Date: 20140620
  Receipt Date: 20140620
  Transmission Date: 20141212
  Serious: Yes (Other)
  Sender: FDA-Public Use
  Company Number: 2014-001741

PATIENT
  Sex: Female

DRUGS (2)
  1. ACTONEL (RISEDRONATE SODIUM) TABLET, 150MG [Suspect]
     Indication: OSTEOPOROSIS
     Route: 048
     Dates: start: 2013
  2. COLECALCIFEROL [Suspect]
     Route: 048
     Dates: start: 2013

REACTIONS (2)
  - Ischaemia [None]
  - Tachycardia [None]
